FAERS Safety Report 25191647 (Version 1)
Quarter: 2025Q2

REPORT INFORMATION
  Report Type: Spontaneous
  Country: FR (occurrence: FR)
  Receive Date: 20250414
  Receipt Date: 20250414
  Transmission Date: 20250716
  Serious: Yes (Other)
  Sender: MYLAN
  Company Number: None

PATIENT
  Age: 85 Year
  Sex: Male
  Weight: 75 kg

DRUGS (16)
  1. PANTOPRAZOLE [Suspect]
     Active Substance: PANTOPRAZOLE
     Indication: Gastrointestinal disorder
     Dates: start: 20220301, end: 20240817
  2. PANTOPRAZOLE [Suspect]
     Active Substance: PANTOPRAZOLE
     Route: 048
     Dates: start: 20220301, end: 20240817
  3. PANTOPRAZOLE [Suspect]
     Active Substance: PANTOPRAZOLE
     Route: 048
     Dates: start: 20220301, end: 20240817
  4. PANTOPRAZOLE [Suspect]
     Active Substance: PANTOPRAZOLE
     Dates: start: 20220301, end: 20240817
  5. MIRTAZAPINE [Suspect]
     Active Substance: MIRTAZAPINE
     Indication: Depression
     Dates: start: 20240625, end: 20240826
  6. MIRTAZAPINE [Suspect]
     Active Substance: MIRTAZAPINE
     Route: 048
     Dates: start: 20240625, end: 20240826
  7. MIRTAZAPINE [Suspect]
     Active Substance: MIRTAZAPINE
     Route: 048
     Dates: start: 20240625, end: 20240826
  8. MIRTAZAPINE [Suspect]
     Active Substance: MIRTAZAPINE
     Dates: start: 20240625, end: 20240826
  9. DOXYCYCLINE [Suspect]
     Active Substance: DOXYCYCLINE
     Indication: Infection
     Dates: start: 20240712, end: 20240823
  10. DOXYCYCLINE [Suspect]
     Active Substance: DOXYCYCLINE
     Route: 048
     Dates: start: 20240712, end: 20240823
  11. DOXYCYCLINE [Suspect]
     Active Substance: DOXYCYCLINE
     Route: 048
     Dates: start: 20240712, end: 20240823
  12. DOXYCYCLINE [Suspect]
     Active Substance: DOXYCYCLINE
     Dates: start: 20240712, end: 20240823
  13. TEDIZOLID [Suspect]
     Active Substance: TEDIZOLID
     Indication: Bacterial infection
     Dates: start: 20240712, end: 20240823
  14. TEDIZOLID [Suspect]
     Active Substance: TEDIZOLID
     Route: 048
     Dates: start: 20240712, end: 20240823
  15. TEDIZOLID [Suspect]
     Active Substance: TEDIZOLID
     Route: 048
     Dates: start: 20240712, end: 20240823
  16. TEDIZOLID [Suspect]
     Active Substance: TEDIZOLID
     Dates: start: 20240712, end: 20240823

REACTIONS (2)
  - Pancytopenia [Not Recovered/Not Resolved]
  - Condition aggravated [Not Recovered/Not Resolved]

NARRATIVE: CASE EVENT DATE: 20240817
